FAERS Safety Report 10678949 (Version 1)
Quarter: 2014Q4

REPORT INFORMATION
  Report Type: Spontaneous
  Country: CH (occurrence: CH)
  Receive Date: 20141229
  Receipt Date: 20141229
  Transmission Date: 20150529
  Serious: Yes (Hospitalization)
  Sender: FDA-Public Use
  Company Number: CH-HORIZON-PRE-0161-2014

PATIENT
  Age: 45 Year
  Sex: Female

DRUGS (3)
  1. LODOTRA 5 MG [Suspect]
     Active Substance: PREDNISONE
     Indication: RHEUMATOID ARTHRITIS
     Route: 048
     Dates: start: 20141101, end: 20141117
  2. CALCIMAGON D3 [Suspect]
     Active Substance: CALCIUM\CHOLECALCIFEROL
     Indication: RHEUMATOID ARTHRITIS
     Route: 048
  3. SALAZOPYRIN [Suspect]
     Active Substance: SULFASALAZINE
     Indication: RHEUMATOID ARTHRITIS
     Route: 048
     Dates: start: 20141101, end: 20141116

REACTIONS (3)
  - Normochromic normocytic anaemia [None]
  - Drug reaction with eosinophilia and systemic symptoms [Unknown]
  - Hepatocellular injury [None]

NARRATIVE: CASE EVENT DATE: 20141117
